FAERS Safety Report 14470321 (Version 3)
Quarter: 2018Q1

REPORT INFORMATION
  Report Type: Spontaneous
  Country: JP (occurrence: JP)
  Receive Date: 20180131
  Receipt Date: 20180221
  Transmission Date: 20180509
  Serious: No
  Sender: FDA-Public Use
  Company Number: PHJP2018JP002132

PATIENT
  Age: 58 Year
  Sex: Male
  Weight: 87 kg

DRUGS (6)
  1. NEORAL [Suspect]
     Active Substance: CYCLOSPORINE
     Indication: INTERSTITIAL LUNG DISEASE
     Dosage: 100 MG, QD, AFTER BREAKFAST
     Route: 048
     Dates: start: 20171204, end: 20171224
  2. PREDONINE [Concomitant]
     Active Substance: PREDNISOLONE
     Indication: INTERSTITIAL LUNG DISEASE
     Dosage: 10 MG, QD, AFTER BREAKFAST
     Route: 048
  3. NEORAL [Suspect]
     Active Substance: CYCLOSPORINE
     Dosage: 200 MG, QD, BEFORE BREAKFAST
     Route: 048
     Dates: start: 20180124, end: 20180129
  4. NEORAL [Suspect]
     Active Substance: CYCLOSPORINE
     Dosage: 150 MG, QD
     Route: 048
     Dates: start: 20180130
  5. NEORAL [Suspect]
     Active Substance: CYCLOSPORINE
     Dosage: 150 MG, QD, AFTER BREAKFAST
     Route: 048
     Dates: start: 20171225, end: 20180116
  6. NEORAL [Suspect]
     Active Substance: CYCLOSPORINE
     Dosage: 200 MG, QD AFTER BREAKFAST
     Route: 048
     Dates: start: 20180117, end: 20180123

REACTIONS (4)
  - Immunosuppressant drug level increased [Recovered/Resolved]
  - Immunosuppressant drug level decreased [Recovered/Resolved]
  - Product use in unapproved indication [Unknown]
  - Therapeutic response unexpected [Unknown]

NARRATIVE: CASE EVENT DATE: 20180124
